FAERS Safety Report 8392243-X (Version None)
Quarter: 2012Q2

REPORT INFORMATION
  Report Type: 
  Country: None (occurrence: None)
  Receive Date: 20120529
  Receipt Date: 20120515
  Transmission Date: 20120825
  Serious: Yes (Other)
  Sender: FDA-Public Use
  Company Number: US-ROCHE-757608

PATIENT
  Sex: Female

DRUGS (3)
  1. ACTONEL [Suspect]
     Indication: OSTEOPOROSIS
     Route: 048
     Dates: start: 20040119, end: 20060302
  2. BONIVA [Suspect]
     Indication: OSTEOPOROSIS
     Route: 048
     Dates: start: 20061205, end: 20100304
  3. FOSAMAX [Suspect]
     Indication: OSTEOPOROSIS
     Route: 048
     Dates: start: 19950522, end: 20031203

REACTIONS (4)
  - OSTEONECROSIS OF JAW [None]
  - FEMUR FRACTURE [None]
  - PAIN IN JAW [None]
  - OSTEONECROSIS [None]
